FAERS Safety Report 9379318 (Version 1)
Quarter: 2013Q3

REPORT INFORMATION
  Report Type: Spontaneous
  Country: US (occurrence: US)
  Receive Date: 20130702
  Receipt Date: 20130702
  Transmission Date: 20140515
  Serious: No
  Sender: FDA-Public Use
  Company Number: US-009507513-1306USA009118

PATIENT
  Age: 17 Year
  Sex: Female

DRUGS (6)
  1. DULERA [Suspect]
     Dosage: 200/5 MCG
     Route: 055
     Dates: start: 201302, end: 201303
  2. SINGULAIR [Concomitant]
  3. PROZAC [Concomitant]
  4. LOVAZA [Concomitant]
  5. NASONEX [Concomitant]
  6. OMEGA-3 MARINE TRIGLYCERIDES [Concomitant]

REACTIONS (1)
  - Chest pain [Recovered/Resolved]
